FAERS Safety Report 6523900-5 (Version None)
Quarter: 2009Q4

REPORT INFORMATION
  Report Type: 
  Country: None (occurrence: None)
  Receive Date: 20091230
  Receipt Date: 20091230
  Transmission Date: 20100525
  Serious: Yes (Other)
  Sender: FDA-Public Use
  Company Number: None

PATIENT
  Sex: Female
  Weight: 68.6 kg

DRUGS (1)
  1. MOTRIN [Suspect]

REACTIONS (7)
  - ASTHENIA [None]
  - DIARRHOEA [None]
  - HYPOPHAGIA [None]
  - MALAISE [None]
  - NAUSEA [None]
  - VOMITING [None]
  - WEIGHT DECREASED [None]
